FAERS Safety Report 7458773-X (Version None)
Quarter: 2011Q2

REPORT INFORMATION
  Report Type: 
  Country: None (occurrence: None)
  Receive Date: 20110504
  Receipt Date: 20110420
  Transmission Date: 20111010
  Serious: Yes (Other)
  Sender: FDA-Public Use
  Company Number: JP-JNJFOC-20110410566

PATIENT
  Age: 49 Year
  Sex: Female

DRUGS (5)
  1. REMICADE [Suspect]
     Indication: PSORIATIC ARTHROPATHY
     Route: 042
  2. CYCLOSPORINE [Concomitant]
     Indication: PSORIATIC ARTHROPATHY
  3. ADALIMUMAB [Suspect]
     Indication: PSORIATIC ARTHROPATHY
  4. ETRETINATE [Concomitant]
     Indication: PSORIATIC ARTHROPATHY
  5. SALAZOSULFAPYRIDINE [Concomitant]
     Indication: PSORIATIC ARTHROPATHY

REACTIONS (1)
  - PSEUDOLYMPHOMA [None]
